FAERS Safety Report 10176963 (Version 1)
Quarter: 2014Q2

REPORT INFORMATION
  Report Type: Spontaneous
  Country: JP (occurrence: JP)
  Receive Date: 20140516
  Receipt Date: 20140516
  Transmission Date: 20141212
  Serious: Yes (Other)
  Sender: FDA-Public Use
  Company Number: JP-ASTRAZENECA-2014SE31490

PATIENT
  Age: 78 Year
  Sex: Male
  Weight: 48 kg

DRUGS (6)
  1. CARBOCAIN [Suspect]
     Indication: NERVE BLOCK
     Dosage: POSTERIOR TRANSVERSUS ABDOMINIS PLANE BLOCK (TAPB)
     Route: 053
  2. CARBOCAIN [Suspect]
     Indication: NERVE BLOCK
     Route: 053
  3. LEVOBUPIVACAINE HYDROCHLORIDE [Suspect]
     Indication: NERVE BLOCK
     Dosage: POSTERIOR TRANSVERSUS ABDOMINIS PLANE BLOCK (TAPB)
     Route: 065
  4. LEVOBUPIVACAINE HYDROCHLORIDE [Suspect]
     Indication: NERVE BLOCK
     Route: 065
  5. FENTANYL [Concomitant]
     Route: 042
  6. LIDOCAINE [Concomitant]
     Route: 065

REACTIONS (2)
  - Dyslalia [Unknown]
  - Altered state of consciousness [Unknown]
